FAERS Safety Report 8235179-7 (Version None)
Quarter: 2012Q1

REPORT INFORMATION
  Report Type: 
  Country: None (occurrence: None)
  Receive Date: 20120326
  Receipt Date: 20120322
  Transmission Date: 20120608
  Serious: Yes (Other)
  Sender: FDA-Public Use
  Company Number: JP-BRACCO-005142

PATIENT
  Age: 57 Year
  Sex: Female
  Weight: 65 kg

DRUGS (12)
  1. TENORMIN [Concomitant]
  2. IOPAMIDOL [Suspect]
     Indication: BREAST CANCER
     Route: 041
     Dates: start: 20110516, end: 20110516
  3. SUNRYTHM [Concomitant]
  4. GOODMIN [Concomitant]
  5. PAXIL [Concomitant]
  6. MEILAX [Concomitant]
  7. FLUNITRAZEPAM [Concomitant]
  8. RESTAMIN [Concomitant]
  9. CLOTIAZEPAM [Concomitant]
  10. PURSENNID [Concomitant]
  11. SOLU-CORTEF [Concomitant]
     Dates: start: 20110515, end: 20110515
  12. IOPAMIDOL [Suspect]
     Indication: COMPUTERISED TOMOGRAM
     Route: 041
     Dates: start: 20110509, end: 20110509

REACTIONS (3)
  - URTICARIA [None]
  - ERYTHEMA [None]
  - RASH [None]
